FAERS Safety Report 16998254 (Version 1)
Quarter: 2019Q4

REPORT INFORMATION
  Report Type: Spontaneous
  Country: US (occurrence: US)
  Receive Date: 20190925
  Receipt Date: 20190925
  Transmission Date: 20200122
  Serious: No
  Sender: FDA-Public Use
  Company Number: None

PATIENT
  Age: 62 Year
  Sex: Male

DRUGS (4)
  1. IRBERSARTAN [Concomitant]
  2. PIOGLITAZONE. [Concomitant]
     Active Substance: PIOGLITAZONE
  3. ERLEADA [Suspect]
     Active Substance: APALUTAMIDE
     Route: 048
     Dates: start: 20190920
  4. ATORVASTATIN [Concomitant]
     Active Substance: ATORVASTATIN

REACTIONS (2)
  - Adverse drug reaction [None]
  - Drug interaction [None]

NARRATIVE: CASE EVENT DATE: 20190920
